FAERS Safety Report 12620930 (Version 1)
Quarter: 2016Q3

REPORT INFORMATION
  Report Type: Spontaneous
  Country: JP (occurrence: JP)
  Receive Date: 20160804
  Receipt Date: 20160804
  Transmission Date: 20161109
  Serious: Yes (Death, Hospitalization, Other)
  Sender: FDA-Public Use
  Company Number: JP-SUN PHARMACEUTICAL INDUSTRIES LTD-2016RR-121429

PATIENT
  Age: 80 Year
  Sex: Male

DRUGS (26)
  1. OSELTAMIVIR [Suspect]
     Active Substance: OSELTAMIVIR
     Indication: INFLUENZA
     Dosage: 75 MG, BID
     Route: 048
     Dates: start: 201501
  2. OSELTAMIVIR [Suspect]
     Active Substance: OSELTAMIVIR
     Dosage: 75 MG, QD
     Route: 048
     Dates: start: 201501
  3. OSELTAMIVIR [Suspect]
     Active Substance: OSELTAMIVIR
     Dosage: 75 MG, BID
     Route: 048
     Dates: start: 201502
  4. PREDNISOLONE. [Suspect]
     Active Substance: PREDNISOLONE
     Dosage: 20 MG,
     Route: 065
  5. RITUXIMAB [Suspect]
     Active Substance: RITUXIMAB
     Dosage: (2 CYCLES) TWO COURSES
     Route: 065
  6. ETOPOSIDE. [Suspect]
     Active Substance: ETOPOSIDE
     Indication: LYMPHOMA
     Dosage: EVERY OTHER DAY
     Route: 065
     Dates: start: 201501
  7. RITUXIMAB [Suspect]
     Active Substance: RITUXIMAB
     Dosage: (2 CYCLES) TWO COURSES
     Route: 065
  8. CYCLOPHOSPHAMIDE. [Suspect]
     Active Substance: CYCLOPHOSPHAMIDE
     Dosage: EVERY OTHER DAY
     Route: 048
     Dates: start: 201501
  9. PERAMIVIR [Suspect]
     Active Substance: PERAMIVIR
     Dosage: 300 MG, IN THE MIDDLE OF FEBRUARY
     Route: 042
     Dates: start: 201502
  10. PREDNISOLONE. [Suspect]
     Active Substance: PREDNISOLONE
     Indication: LYMPHOMA
     Dosage: EVERY OTHER DAY
     Route: 065
     Dates: start: 201501
  11. VINCRISTINE [Suspect]
     Active Substance: VINCRISTINE
     Indication: LYMPHOMA
     Dosage: (6 CYCLES) SIX COURSES
     Route: 065
  12. ETOPOSIDE. [Suspect]
     Active Substance: ETOPOSIDE
     Dates: start: 201502
  13. PROCARBAZINE [Suspect]
     Active Substance: PROCARBAZINE
     Indication: LYMPHOMA
     Dosage: UNK
     Route: 065
     Dates: start: 201502
  14. CYCLOPHOSPHAMIDE. [Suspect]
     Active Substance: CYCLOPHOSPHAMIDE
     Indication: LYMPHOMA
     Dosage: (6 CYCLES) SIX COURSES
     Route: 065
  15. BENDAMUSTINE [Suspect]
     Active Substance: BENDAMUSTINE
     Indication: LYMPHOMA
     Dosage: (2 CYCLES) TWO COURSES
     Route: 065
  16. DEXAMETHASONE. [Suspect]
     Active Substance: DEXAMETHASONE
     Indication: LYMPHOMA
     Dosage: (2 CYCLES) TWO COURSES
     Route: 065
  17. PERAMIVIR [Suspect]
     Active Substance: PERAMIVIR
     Indication: INFLUENZA
     Dosage: 300 MG, UNK
     Route: 042
     Dates: start: 201502
  18. PREDNISOLONE. [Suspect]
     Active Substance: PREDNISOLONE
     Dosage: 30 MG,
     Route: 065
     Dates: start: 201412
  19. PREDNISOLONE. [Suspect]
     Active Substance: PREDNISOLONE
     Dosage: (6 CYCLES) SIX COURSES
     Route: 065
  20. RITUXIMAB [Suspect]
     Active Substance: RITUXIMAB
     Indication: LYMPHOMA
     Dosage: (6 CYCLES) SIX COURSES
     Route: 065
  21. OSELTAMIVIR [Suspect]
     Active Substance: OSELTAMIVIR
     Dosage: UNK
  22. CISPLATIN. [Suspect]
     Active Substance: CISPLATIN
     Indication: LYMPHOMA
     Dosage: (2 CYCLES) TWO COURSES
     Route: 065
  23. CYCLOPHOSPHAMIDE. [Suspect]
     Active Substance: CYCLOPHOSPHAMIDE
     Dosage: END OF FEBRUARY
     Route: 065
     Dates: start: 201502
  24. GEMCITABINE [Suspect]
     Active Substance: GEMCITABINE\GEMCITABINE HYDROCHLORIDE
     Indication: LYMPHOMA
     Dosage: (2 CYCLES) TWO COURSES
     Route: 065
  25. DOXORUBICIN [Suspect]
     Active Substance: DOXORUBICIN
     Indication: LYMPHOMA
     Dosage: (6 CYCLES) SIX COURSES
     Route: 065
  26. PROCARBAZINE [Suspect]
     Active Substance: PROCARBAZINE
     Dosage: EVERY OTHER DAY
     Route: 065
     Dates: start: 201501

REACTIONS (3)
  - Drug resistance [Fatal]
  - Condition aggravated [Fatal]
  - Viral load increased [Fatal]
